FAERS Safety Report 8494608-4 (Version None)
Quarter: 2012Q3

REPORT INFORMATION
  Report Type: 
  Country: None (occurrence: None)
  Receive Date: 20120709
  Receipt Date: 20120627
  Transmission Date: 20120928
  Serious: Yes (Other)
  Sender: FDA-Public Use
  Company Number: US-JNJFOC-20120614404

PATIENT
  Sex: Female
  Weight: 52.16 kg

DRUGS (3)
  1. REMICADE [Suspect]
     Indication: COLITIS
     Route: 042
     Dates: start: 20120101, end: 20120101
  2. REMICADE [Suspect]
     Route: 042
     Dates: start: 20120101, end: 20120501
  3. BIRTH CONTROL PILL [Concomitant]
     Route: 048
     Dates: start: 20020101

REACTIONS (5)
  - HYPOAESTHESIA [None]
  - MALAISE [None]
  - NAUSEA [None]
  - WEIGHT INCREASED [None]
  - ALOPECIA [None]
